FAERS Safety Report 21602865 (Version 1)
Quarter: 2022Q4

REPORT INFORMATION
  Report Type: Spontaneous
  Country: US (occurrence: None)
  Receive Date: 20221115
  Receipt Date: 20221115
  Transmission Date: 20230113
  Serious: No
  Sender: FDA-Public Use
  Company Number: None

PATIENT

DRUGS (2)
  1. LIDOCAINE HYDROCHLORIDE [Suspect]
     Active Substance: LIDOCAINE HYDROCHLORIDE
  2. DEVICE [Suspect]
     Active Substance: DEVICE

REACTIONS (4)
  - Incorrect drug administration rate [None]
  - Wrong technique in device usage process [None]
  - Accidental overdose [None]
  - Dose calculation error [None]
